FAERS Safety Report 20341030 (Version 3)
Quarter: 2022Q1

REPORT INFORMATION
  Report Type: Report from Study
  Country: US (occurrence: US)
  Receive Date: 20220117
  Receipt Date: 20220228
  Transmission Date: 20220423
  Serious: Yes (Hospitalization, Other)
  Sender: FDA-Public Use
  Company Number: US-KYOWAKIRIN-2022BKK000029

PATIENT

DRUGS (3)
  1. CRYSVITA [Suspect]
     Active Substance: BUROSUMAB-TWZA
     Indication: Hereditary hypophosphataemic rickets
     Dosage: 90 MG, ONCE EVERY 28 DAYS
     Route: 058
     Dates: start: 20190521
  2. CRYSVITA [Suspect]
     Active Substance: BUROSUMAB-TWZA
     Dosage: 90 MG, ONCE EVERY 28 DAYS
     Route: 058
  3. CRYSVITA [Suspect]
     Active Substance: BUROSUMAB-TWZA
     Dosage: 90 MG, ONCE EVERY 28 DAYS
     Route: 058

REACTIONS (5)
  - COVID-19 pneumonia [Not Recovered/Not Resolved]
  - Psoriatic arthropathy [Unknown]
  - Allergic bronchitis [Unknown]
  - Asthenia [Unknown]
  - Product dose omission issue [Not Recovered/Not Resolved]
